FAERS Safety Report 16771417 (Version 1)
Quarter: 2019Q3

REPORT INFORMATION
  Report Type: Spontaneous
  Country: CZ (occurrence: CZ)
  Receive Date: 20190904
  Receipt Date: 20190904
  Transmission Date: 20191005
  Serious: Yes (Death, Hospitalization)
  Sender: FDA-Public Use
  Company Number: CZ-ELI_LILLY_AND_COMPANY-CZ201908015057

PATIENT
  Age: 34 Year
  Sex: Female

DRUGS (4)
  1. FLUOROURACIL 5 FU [Concomitant]
     Active Substance: FLUOROURACIL
     Indication: ADENOCARCINOMA
     Dosage: UNK, UNKNOWN
     Route: 065
  2. ERBITUX [Suspect]
     Active Substance: CETUXIMAB
     Indication: ADENOCARCINOMA
     Dosage: UNK, UNKNOWN
     Route: 065
  3. LEUCOVORIN [FOLINIC ACID] [Concomitant]
     Active Substance: LEUCOVORIN
     Indication: ADENOCARCINOMA
     Dosage: UNK UNK, UNKNOWN
     Route: 065
  4. OXALIPLATIN. [Concomitant]
     Active Substance: OXALIPLATIN
     Indication: ADENOCARCINOMA
     Dosage: UNK, UNKNOWN
     Route: 065

REACTIONS (9)
  - Disease progression [Fatal]
  - General physical health deterioration [Unknown]
  - Hypophagia [Unknown]
  - Bronchitis [Unknown]
  - Hepatomegaly [Unknown]
  - Ascites [Unknown]
  - Hepatorenal failure [Fatal]
  - Fatigue [Unknown]
  - Off label use [Unknown]
